FAERS Safety Report 7632650-3 (Version None)
Quarter: 2011Q3

REPORT INFORMATION
  Report Type: 
  Country: None (occurrence: None)
  Receive Date: 20110725
  Receipt Date: 20101111
  Transmission Date: 20111222
  Serious: No
  Sender: FDA-Public Use
  Company Number: US-BRISTOL-MYERS SQUIBB COMPANY-15381056

PATIENT
  Age: 58 Year
  Sex: Female
  Weight: 50 kg

DRUGS (16)
  1. MULTAQ [Concomitant]
  2. AMILORIDE HYDROCHLORIDE [Concomitant]
  3. WARFARIN SODIUM [Suspect]
     Dosage: INITIALLY 10MG INCREASED TO 25MG STARTED:SINCE APRIL
  4. IMDUR [Concomitant]
     Indication: ANGINA PECTORIS
     Route: 060
  5. CYMBALTA [Concomitant]
     Dosage: ONE CAPS AT  BEDTIME
  6. POTASSIUM CHLORIDE [Concomitant]
     Dosage: 1 DF:4 TABLESPOONS LIQUID
  7. ULTRASE MT20 [Concomitant]
  8. AVINZA [Concomitant]
     Indication: PAIN
  9. LANTUS [Concomitant]
     Dosage: 1 DF:10UNITS AT BEDTIME SLIDING SCALE
  10. LASIX [Concomitant]
  11. ADVAIR DISKUS 100/50 [Concomitant]
  12. FLEXERIL [Concomitant]
     Dosage: 1 DF:1 TAB 10MG
  13. FERROUS SULFATE TAB [Concomitant]
  14. OXYGEN [Concomitant]
     Dosage: PER/24HRS A DAY
  15. PREDNISONE [Concomitant]
  16. PROVENTIL GENTLEHALER [Concomitant]
     Route: 055

REACTIONS (3)
  - HYPOAESTHESIA [None]
  - PAIN [None]
  - INTERNATIONAL NORMALISED RATIO DECREASED [None]
